FAERS Safety Report 7694517-4 (Version None)
Quarter: 2011Q3

REPORT INFORMATION
  Report Type: 
  Country: None (occurrence: None)
  Receive Date: 20110819
  Receipt Date: 20110816
  Transmission Date: 20111222
  Serious: Yes (Hospitalization, Disabling)
  Sender: FDA-Public Use
  Company Number: PHHO2011IT13963

PATIENT
  Sex: Female
  Weight: 95 kg

DRUGS (3)
  1. APIDRA [Concomitant]
     Indication: DIABETES MELLITUS
     Dosage: UNK
  2. ETORICOXIB [Concomitant]
     Indication: THYROID DISORDER
     Dosage: 50 UG, DAILY
  3. CERTICAN [Suspect]
     Indication: PROPHYLAXIS AGAINST TRANSPLANT REJECTION
     Dosage: 5 MG, DAILY
     Dates: start: 20101222, end: 20110809

REACTIONS (2)
  - OEDEMA PERIPHERAL [None]
  - RESPIRATORY FAILURE [None]
